FAERS Safety Report 7050009-7 (Version None)
Quarter: 2010Q4

REPORT INFORMATION
  Report Type: 
  Country: None (occurrence: None)
  Receive Date: 20101012
  Receipt Date: 20100928
  Transmission Date: 20110411
  Serious: Yes (Hospitalization)
  Sender: FDA-Public Use
  Company Number: 018075

PATIENT
  Sex: Male
  Weight: 83.9 kg

DRUGS (1)
  1. CIMZIA [Suspect]
     Indication: CROHN'S DISEASE
     Dosage: (SUBCUTANEOUS)
     Route: 058
     Dates: start: 20100601, end: 20100819

REACTIONS (2)
  - HERPES OPHTHALMIC [None]
  - IMPAIRED DRIVING ABILITY [None]
